FAERS Safety Report 4356872-2 (Version None)
Quarter: 2004Q2

REPORT INFORMATION
  Report Type: 
  Country: None (occurrence: None)
  Receive Date: 20040507
  Receipt Date: 20040422
  Transmission Date: 20050107
  Serious: Yes (Death, Hospitalization)
  Sender: FDA-Public Use
  Company Number: 2004-0006947

PATIENT
  Age: 65 Year
  Sex: Female

DRUGS (2)
  1. VISTIDE [Suspect]
     Indication: CYTOMEGALOVIRUS COLITIS
     Dosage: INTRAVENOUS
     Route: 042
     Dates: start: 19990901, end: 20000101
  2. GANCICLOVIR SODIUM [Concomitant]

REACTIONS (5)
  - BRONCHOALVEOLAR LAVAGE ABNORMAL [None]
  - CYTOMEGALOVIRUS INFECTION [None]
  - DRUG RESISTANCE [None]
  - ENCEPHALOPATHY [None]
  - PNEUMONITIS [None]
